FAERS Safety Report 4949223-3 (Version None)
Quarter: 2006Q1

REPORT INFORMATION
  Report Type: 
  Country: None (occurrence: None)
  Receive Date: 20060321
  Receipt Date: 20060313
  Transmission Date: 20060701
  Serious: Yes (Other)
  Sender: FDA-Public Use
  Company Number: PHNU2006PL01322

PATIENT
  Sex: Female

DRUGS (2)
  1. MULTIPLE DRUG THERAPY NOS [Concomitant]
     Route: 065
  2. EXELON [Suspect]
     Indication: DEMENTIA
     Route: 048

REACTIONS (3)
  - ASTHENIA [None]
  - LIVIDITY [None]
  - LOSS OF CONSCIOUSNESS [None]
